FAERS Safety Report 5725935-9 (Version None)
Quarter: 2008Q2

REPORT INFORMATION
  Report Type: 
  Country: None (occurrence: None)
  Receive Date: 20080501
  Receipt Date: 20080501
  Transmission Date: 20081010
  Serious: No
  Sender: FDA-Public Use
  Company Number: None

PATIENT
  Age: 47 Year
  Sex: Male

DRUGS (10)
  1. ISONIAZID [Suspect]
     Dates: start: 20050201, end: 20050307
  2. LEXAPRO [Concomitant]
  3. PROZAC [Concomitant]
  4. FIORICET [Concomitant]
  5. PROTONIX [Concomitant]
  6. VASOTEC [Concomitant]
  7. BEXTRA [Concomitant]
  8. MULTI-VITAMIN [Concomitant]
  9. MARIJUANA [Concomitant]
  10. VICODIN [Concomitant]

REACTIONS (11)
  - ABDOMINAL PAIN UPPER [None]
  - ALANINE AMINOTRANSFERASE INCREASED [None]
  - ANOREXIA [None]
  - ASPARTATE AMINOTRANSFERASE INCREASED [None]
  - BACK PAIN [None]
  - ERECTILE DYSFUNCTION [None]
  - FLAT AFFECT [None]
  - LIVER INJURY [None]
  - NAUSEA [None]
  - NECK PAIN [None]
  - WEIGHT DECREASED [None]
